FAERS Safety Report 4949598-5 (Version None)
Quarter: 2006Q1

REPORT INFORMATION
  Report Type: 
  Country: None (occurrence: None)
  Receive Date: 20060321
  Receipt Date: 20060310
  Transmission Date: 20060701
  Serious: Yes (Death, Other)
  Sender: FDA-Public Use
  Company Number: UG-BOEHRINGER INGELHEIM PHARMACEUTICALS, INC.-2006-DE-01330GD

PATIENT

DRUGS (2)
  1. TRIOMUNE [Suspect]
     Indication: HIV INFECTION
  2. DRUGS FOR TREATMENT OF TUBERCULOSIS [Suspect]
     Indication: TUBERCULOSIS

REACTIONS (3)
  - DEATH [None]
  - DRUG INEFFECTIVE [None]
  - DRUG INTERACTION [None]
